FAERS Safety Report 25852569 (Version 1)
Quarter: 2025Q3

REPORT INFORMATION
  Report Type: Spontaneous
  Country: US (occurrence: US)
  Receive Date: 20250926
  Receipt Date: 20250926
  Transmission Date: 20251020
  Serious: Yes (Other)
  Sender: AUROBINDO
  Company Number: US-AUROBINDO-AUR-APL-2025-047758

PATIENT
  Age: 9 Year
  Sex: Male

DRUGS (19)
  1. ARIPIPRAZOLE [Suspect]
     Active Substance: ARIPIPRAZOLE
     Indication: Mood altered
     Route: 065
     Dates: start: 202208, end: 202209
  2. SERTRALINE [Suspect]
     Active Substance: SERTRALINE HYDROCHLORIDE
     Indication: Obsessive-compulsive disorder
     Route: 065
     Dates: start: 202205
  3. CLONIDINE [Suspect]
     Active Substance: CLONIDINE
     Indication: Obsessive-compulsive disorder
     Route: 065
     Dates: start: 202205
  4. OLANZAPINE [Suspect]
     Active Substance: OLANZAPINE
     Indication: Obsessive-compulsive disorder
     Route: 065
     Dates: start: 202206
  5. KETAMINE HYDROCHLORIDE [Suspect]
     Active Substance: KETAMINE HYDROCHLORIDE
     Indication: Obsessive-compulsive disorder
     Route: 065
     Dates: start: 202207
  6. CLOMIPRAMINE HYDROCHLORIDE [Suspect]
     Active Substance: CLOMIPRAMINE HYDROCHLORIDE
     Indication: Obsessive-compulsive disorder
     Route: 065
     Dates: start: 202206
  7. LURASIDONE [Suspect]
     Active Substance: LURASIDONE
     Indication: Obsessive-compulsive disorder
     Route: 065
     Dates: start: 202209
  8. LAMOTRIGINE [Suspect]
     Active Substance: LAMOTRIGINE
     Indication: Mood altered
     Route: 065
     Dates: start: 202208
  9. LAMOTRIGINE [Suspect]
     Active Substance: LAMOTRIGINE
     Dosage: 25 MILLIGRAM, TWO TIMES A DAY
     Route: 065
     Dates: start: 202208
  10. AZITHROMYCIN [Suspect]
     Active Substance: AZITHROMYCIN
     Indication: Paediatric acute-onset neuropsychiatric syndrome
     Route: 065
  11. CLINDAMYCIN [Suspect]
     Active Substance: CLINDAMYCIN
     Indication: Paediatric acute-onset neuropsychiatric syndrome
     Route: 065
  12. PREDNISONE [Suspect]
     Active Substance: PREDNISONE
     Indication: Paediatric acute-onset neuropsychiatric syndrome
     Route: 065
  13. METHYLPHENIDATE HYDROCHLORIDE [Suspect]
     Active Substance: METHYLPHENIDATE HYDROCHLORIDE
     Indication: Attention deficit hyperactivity disorder
     Route: 065
     Dates: start: 202306
  14. AUGMENTIN [Suspect]
     Active Substance: AMOXICILLIN\CLAVULANATE POTASSIUM
     Indication: Paediatric acute-onset neuropsychiatric syndrome
     Route: 065
     Dates: start: 202301
  15. FLUVOXAMINE [Suspect]
     Active Substance: FLUVOXAMINE
     Indication: Obsessive-compulsive disorder
     Route: 065
     Dates: start: 202206
  16. VILOXAZINE [Suspect]
     Active Substance: VILOXAZINE
     Indication: Attention deficit hyperactivity disorder
     Route: 065
     Dates: start: 202306
  17. IMMUNE GLOBULIN NOS [Suspect]
     Active Substance: IMMUNE GLOBULIN NOS
     Indication: Paediatric acute-onset neuropsychiatric syndrome
     Route: 042
     Dates: start: 202207
  18. AMOXICILLIN [Concomitant]
     Active Substance: AMOXICILLIN
     Indication: Streptococcal infection
     Route: 065
     Dates: start: 202205
  19. IBUPROFEN [Concomitant]
     Active Substance: IBUPROFEN
     Indication: Paediatric acute-onset neuropsychiatric syndrome
     Route: 065

REACTIONS (1)
  - Drug ineffective [Unknown]
